FAERS Safety Report 15568382 (Version 1)
Quarter: 2018Q4

REPORT INFORMATION
  Report Type: Spontaneous
  Country: US (occurrence: US)
  Receive Date: 20181031
  Receipt Date: 20181031
  Transmission Date: 20190205
  Serious: No
  Sender: FDA-Public Use
  Company Number: US-LEO PHARMA-314557

PATIENT
  Sex: Female

DRUGS (1)
  1. PICATO [Suspect]
     Active Substance: INGENOL MEBUTATE
     Indication: ACTINIC KERATOSIS
     Dosage: APPLIED 1ST DOSE, THEN SKIPPED THE 20-OCT-2018, SPOKE TO THE DERMATOLOGIST AND CONTINUED ON 21-OCT-2
     Route: 061
     Dates: start: 20181019

REACTIONS (3)
  - Inappropriate schedule of product administration [Unknown]
  - Application site erosion [Not Recovered/Not Resolved]
  - Application site erythema [Not Recovered/Not Resolved]
